FAERS Safety Report 22598442 (Version 1)
Quarter: 2023Q2

REPORT INFORMATION
  Report Type: Spontaneous
  Country: SE (occurrence: SE)
  Receive Date: 20230614
  Receipt Date: 20230614
  Transmission Date: 20230721
  Serious: Yes (Hospitalization)
  Sender: FDA-Public Use
  Company Number: None

PATIENT
  Age: 62 Year
  Sex: Female

DRUGS (11)
  1. VENLAFAXINE HYDROCHLORIDE [Suspect]
     Active Substance: VENLAFAXINE HYDROCHLORIDE
     Indication: Depression
     Dosage: FOR ACTIVE INGREDIENT VENLAFAXINE HYDROCHLORIDE THE STRENGTH IS 84.87 MILLIGRAMS.?FOR ACTIVE INGREDI
     Dates: end: 20230519
  2. PROPIOMAZINE [Concomitant]
     Active Substance: PROPIOMAZINE
     Indication: Product used for unknown indication
     Dosage: FOR ACTIVE INGREDIENT PROPIOMAZIN THE STRENGTH IS 25 MILLIGRAM .?FOR ACTIVE INGREDIENT PROPIOMAZINMA
  3. LIVOSTIN [Concomitant]
     Active Substance: LEVOCABASTINE HYDROCHLORIDE
     Indication: Product used for unknown indication
     Dosage: FOR ACTIVE INGREDIENT LEVOKABASTINHYDROKLORID THE STRENGTH IS .54 MILLIGRAM/MILLILITER .?FOR ACTIVE
  4. MIRTAZAPINE [Concomitant]
     Active Substance: MIRTAZAPINE
     Indication: Product used for unknown indication
  5. ACETAMINOPHEN [Concomitant]
     Active Substance: ACETAMINOPHEN
     Indication: Product used for unknown indication
  6. DESLORATADINE [Concomitant]
     Active Substance: DESLORATADINE
     Indication: Product used for unknown indication
  7. CANDESARTAN [Concomitant]
     Active Substance: CANDESARTAN
     Indication: Product used for unknown indication
  8. FELODIPINE [Concomitant]
     Active Substance: FELODIPINE
     Indication: Product used for unknown indication
  9. ROSUVASTATIN [Concomitant]
     Active Substance: ROSUVASTATIN
     Indication: Product used for unknown indication
     Dosage: FOR ACTIVE INGREDIENT ROSUVASTATINKALCIUM THE STRENGTH IS 10.42 MILLIGRAM .?FOR ACTIVE INGREDIENT RO
  10. NORMORIX MITE [Concomitant]
     Active Substance: AMILORIDE HYDROCHLORIDE\HYDROCHLOROTHIAZIDE
     Indication: Product used for unknown indication
  11. METFORMIN [Concomitant]
     Active Substance: METFORMIN HYDROCHLORIDE
     Indication: Product used for unknown indication
     Dosage: FOR ACTIVE INGREDIENT METFORMIN HYDROCHLORIDE THE STRENGTH IS 500 MILLIGRAMS.?FOR ACTIVE INGREDIENT

REACTIONS (1)
  - Stress cardiomyopathy [Recovering/Resolving]

NARRATIVE: CASE EVENT DATE: 20230519
